FAERS Safety Report 4350890-6 (Version None)
Quarter: 2004Q2

REPORT INFORMATION
  Report Type: 
  Country: None (occurrence: None)
  Receive Date: 20040428
  Receipt Date: 20040414
  Transmission Date: 20050107
  Serious: Yes (Hospitalization, Other)
  Sender: FDA-Public Use
  Company Number: USA040465008

PATIENT
  Age: 76 Year
  Sex: Female

DRUGS (15)
  1. FORTEO [Suspect]
     Indication: OSTEOPOROSIS
     Dates: start: 20040316
  2. PROPYLTHIOURACIL [Concomitant]
  3. CELEXA [Concomitant]
  4. XANAX [Concomitant]
  5. PLAQUENIL [Concomitant]
  6. LASIX [Concomitant]
  7. CARDIZEM [Concomitant]
  8. PROPAFENONE HYDROCHLORIDE [Concomitant]
  9. LANTUS [Concomitant]
  10. INSULIN [Concomitant]
  11. PREDNISONE [Concomitant]
  12. FENTANYL [Concomitant]
  13. COLACE (DOCUSATE SODIUM) [Concomitant]
  14. ABILIFY [Concomitant]
  15. FOSAMAX [Concomitant]

REACTIONS (5)
  - HYPERTHYROIDISM [None]
  - PHARMACEUTICAL PRODUCT COMPLAINT [None]
  - PNEUMONIA [None]
  - SCRATCH [None]
  - SPINAL FRACTURE [None]
